FAERS Safety Report 18812597 (Version 1)
Quarter: 2021Q1

REPORT INFORMATION
  Report Type: Spontaneous
  Country: JP (occurrence: JP)
  Receive Date: 20210130
  Receipt Date: 20210130
  Transmission Date: 20210419
  Serious: Yes (Other)
  Sender: FDA-Public Use
  Company Number: NVSC2021JP019065

PATIENT
  Age: 8 Decade
  Sex: Female

DRUGS (2)
  1. RIVASTACH [Suspect]
     Active Substance: RIVASTIGMINE
     Indication: DEMENTIA ALZHEIMER^S TYPE
     Dosage: 4.6 MG, QD (9.0 MG RIVASTIGMINE BASE (PATCH 5.0 (CM2))
     Route: 062
  2. RIVASTACH [Suspect]
     Active Substance: RIVASTIGMINE
     Dosage: 1.9 MG, QD (4.5 MG RIVASTIGMINE BASE (PATCH 2.5 (CM2))
     Route: 062

REACTIONS (1)
  - Altered state of consciousness [Unknown]
